FAERS Safety Report 18664624 (Version 6)
Quarter: 2022Q3

REPORT INFORMATION
  Report Type: Spontaneous
  Country: GB (occurrence: GB)
  Receive Date: 20201225
  Receipt Date: 20220915
  Transmission Date: 20221026
  Serious: Yes (Other)
  Sender: FDA-Public Use
  Company Number: GB-BIOVITRUM-2020GB7895

PATIENT
  Age: 55 Year
  Sex: Male

DRUGS (17)
  1. ORFADIN [Suspect]
     Active Substance: NITISINONE
     Indication: Alkaptonuria
     Dosage: 2 MG
     Dates: start: 2016
  2. SUSTAC [Concomitant]
     Active Substance: NITROGLYCERIN
     Dosage: 2.6 MG
     Dates: start: 2016
  3. SUSTAC [Concomitant]
     Active Substance: NITROGLYCERIN
     Dosage: 2.6 MG
     Dates: start: 2018
  4. NORVASC [Concomitant]
     Active Substance: AMLODIPINE BESYLATE
     Dosage: 5 MG
     Dates: start: 2016
  5. NORVASC [Concomitant]
     Active Substance: AMLODIPINE BESYLATE
     Dates: start: 2018
  6. LIPIREX [Concomitant]
     Dosage: 20 MG
     Dates: start: 2016
  7. LIPIREX [Concomitant]
     Dates: start: 2018
  8. LOWPLAT [Concomitant]
     Dosage: 75 MG
     Dates: start: 2016
  9. LOWPLAT [Concomitant]
     Dates: start: 2018
  10. BISOPROLOL FUMARATE [Concomitant]
     Active Substance: BISOPROLOL FUMARATE
     Dosage: 2.5 MG
     Dates: start: 2016
  11. BISOPROLOL FUMARATE [Concomitant]
     Active Substance: BISOPROLOL FUMARATE
     Dates: start: 2018
  12. INSULIN NOS [Concomitant]
     Active Substance: INSULIN NOS
  13. GLUCOPHAGE [Concomitant]
     Active Substance: METFORMIN HYDROCHLORIDE
  14. MINOXIDIL [Concomitant]
     Active Substance: MINOXIDIL
  15. VILDAGLIPTIN [Concomitant]
     Active Substance: VILDAGLIPTIN
  16. METFORMIN HYDROCHLORIDE\VILDAGLIPTIN [Concomitant]
     Active Substance: METFORMIN HYDROCHLORIDE\VILDAGLIPTIN
  17. METHYLCOBALAMIN [Concomitant]
     Active Substance: METHYLCOBALAMIN

REACTIONS (3)
  - Lenticular opacities [Not Recovered/Not Resolved]
  - Cataract [Unknown]
  - Amino acid level increased [Not Recovered/Not Resolved]

NARRATIVE: CASE EVENT DATE: 20160101
